FAERS Safety Report 7328907-6 (Version None)
Quarter: 2011Q1

REPORT INFORMATION
  Report Type: 
  Country: None (occurrence: None)
  Receive Date: 20110303
  Receipt Date: 20110223
  Transmission Date: 20110831
  Serious: Yes (Death)
  Sender: FDA-Public Use
  Company Number: DE-ROCHE-762909

PATIENT
  Sex: Female

DRUGS (1)
  1. BEVACIZUMAB [Suspect]
     Route: 065
     Dates: end: 20101103

REACTIONS (1)
  - DEATH [None]
